FAERS Safety Report 5197131-8 (Version None)
Quarter: 2007Q1

REPORT INFORMATION
  Report Type: 
  Country: None (occurrence: None)
  Receive Date: 20070103
  Receipt Date: 20061230
  Transmission Date: 20070707
  Serious: Yes (Life-Threatening)
  Sender: FDA-Public Use
  Company Number: BR-GLAXOSMITHKLINE-A0632975A

PATIENT
  Age: 32 Year
  Sex: Female
  Weight: 60 kg

DRUGS (3)
  1. ZIAGENAVIR [Suspect]
     Indication: HIV INFECTION
     Dosage: 300MG TWICE PER DAY
     Route: 048
     Dates: start: 20061209
  2. EFAVIRENZ [Concomitant]
     Route: 048
     Dates: start: 20061209
  3. DIDANOSINE [Concomitant]
     Route: 048
     Dates: start: 20061209

REACTIONS (4)
  - IMPAIRED DRIVING ABILITY [None]
  - NAUSEA [None]
  - PERSECUTORY DELUSION [None]
  - SOMNOLENCE [None]
